FAERS Safety Report 6806735-5 (Version None)
Quarter: 2010Q2

REPORT INFORMATION
  Report Type: 
  Country: None (occurrence: None)
  Receive Date: 20100629
  Receipt Date: 20080519
  Transmission Date: 20101027
  Serious: No
  Sender: FDA-Public Use
  Company Number: US-PFIZER INC-2008040831

PATIENT
  Age: 83 Year
  Sex: Male
  Weight: 67.272 kg

DRUGS (4)
  1. VIAGRA [Suspect]
     Indication: ERECTILE DYSFUNCTION
     Dates: start: 20080505
  2. ALL OTHER THERAPEUTIC PRODUCTS [Concomitant]
  3. CARDIAC THERAPY [Concomitant]
  4. DRUG, UNSPECIFIED [Concomitant]

REACTIONS (2)
  - DIZZINESS [None]
  - DRUG EFFECT DECREASED [None]
